FAERS Safety Report 22537580 (Version 2)
Quarter: 2023Q2

REPORT INFORMATION
  Report Type: Spontaneous
  Country: CA (occurrence: CA)
  Receive Date: 20230608
  Receipt Date: 20230620
  Transmission Date: 20230722
  Serious: No
  Sender: FDA-Public Use
  Company Number: CA-PFIZER INC-PV202300099865

PATIENT
  Age: 42 Year
  Sex: Female

DRUGS (1)
  1. PAXLOVID [Suspect]
     Active Substance: NIRMATRELVIR\RITONAVIR
     Indication: COVID-19 treatment
     Dosage: 1 DF, 2X/DAY X 5 DAY(S), 10 TABLET(S) (TEN)
     Route: 048
     Dates: start: 20230603

REACTIONS (1)
  - Product prescribing error [Unknown]
